FAERS Safety Report 7556432-6 (Version None)
Quarter: 2011Q2

REPORT INFORMATION
  Report Type: 
  Country: None (occurrence: None)
  Receive Date: 20110615
  Receipt Date: 20110615
  Transmission Date: 20111010
  Serious: Yes (Other)
  Sender: FDA-Public Use
  Company Number: None

PATIENT
  Age: 59 Year
  Sex: Male
  Weight: 61.2356 kg

DRUGS (1)
  1. BOTOX [Suspect]
     Indication: MIGRAINE
     Dosage: 1 TIME ONLY
     Dates: start: 20110608, end: 20110608

REACTIONS (5)
  - BURNING SENSATION [None]
  - DISORDER OF ORBIT [None]
  - MIGRAINE [None]
  - NO THERAPEUTIC RESPONSE [None]
  - MUSCLE SPASMS [None]
